FAERS Safety Report 7317565 (Version 8)
Quarter: 2013Q2

REPORT INFORMATION
  Report Type: Spontaneous
  Country: US (occurrence: US)
  Receive Date: 20100312
  Receipt Date: 20130416
  Transmission Date: 20140414
  Serious: Yes (Hospitalization, Other)
  Sender: FDA-Public Use
  Company Number: US-BAYER-201016017NA

PATIENT
  Age: 23 Year
  Sex: Female
  Weight: 100 kg

DRUGS (36)
  1. YAZ [Suspect]
  2. YASMIN [Suspect]
  3. COUMADIN [Concomitant]
  4. LOVENOX [Concomitant]
  5. NORCO [Concomitant]
  6. NUBAIN [Concomitant]
  7. PHENERGAN [PROMETHAZINE] [Concomitant]
  8. XANAX [Concomitant]
  9. AMBIEN [Concomitant]
  10. HYDROCODONE [Concomitant]
  11. PROPOXYPHENE [Concomitant]
  12. PROMETHAZINE [Concomitant]
  13. LYRICA [Concomitant]
  14. AMITRIPTYLINE [Concomitant]
  15. KETOROLAC [Concomitant]
  16. LEXAPRO [Concomitant]
  17. TUSSIONEX [Concomitant]
  18. KETEK [Concomitant]
  19. METFORMIN [Concomitant]
  20. IOPHEN-C NR [Concomitant]
  21. DICLOFENAC [Concomitant]
  22. LEVOQUIN [Concomitant]
  23. ADVAIR [Concomitant]
  24. BENZONATATE [Concomitant]
  25. NAPROXEN [Concomitant]
  26. AZITHROMYCIN [Concomitant]
  27. LORAZEPAM [Concomitant]
  28. PRO-AIR [Concomitant]
  29. NITROFURANTOIN [Concomitant]
  30. CARISOPRODOL [Concomitant]
     Indication: MUSCLE SPASMS
     Dosage: 35 MG, UNK
     Route: 054
  31. DIAZEPAM [Concomitant]
     Indication: CONVULSION
     Dosage: 10 MG, UNK
  32. OXYCODONE/APAP [Concomitant]
     Dosage: UNK UNK, QID
  33. FENTANYL [Concomitant]
     Dosage: 75 UNK, UNK
  34. SULFAMETHOXAZOLE W/TRIMETHOPRIM [Concomitant]
     Dosage: UNK UNK, BID
  35. ZOSYN [Concomitant]
  36. DOXYCYCLINE [Concomitant]

REACTIONS (14)
  - Cholecystitis chronic [None]
  - Abdominal pain upper [None]
  - Nausea [None]
  - Vomiting [None]
  - Cholesterosis [None]
  - Deep vein thrombosis [None]
  - Venous thrombosis [None]
  - International normalised ratio increased [Unknown]
  - Impaired healing [Unknown]
  - Subclavian vein thrombosis [None]
  - Axillary vein thrombosis [None]
  - Thrombophlebitis superficial [Recovered/Resolved]
  - Deep vein thrombosis [None]
  - Vena cava thrombosis [None]
